FAERS Safety Report 7241602-7 (Version None)
Quarter: 2011Q1

REPORT INFORMATION
  Report Type: 
  Country: None (occurrence: None)
  Receive Date: 20110124
  Receipt Date: 20110119
  Transmission Date: 20110831
  Serious: Yes (Hospitalization)
  Sender: FDA-Public Use
  Company Number: JP-SANOFI-AVENTIS-2011SA003888

PATIENT
  Age: 76 Year
  Sex: Male

DRUGS (4)
  1. ITANGO PEN [Suspect]
  2. LANTUS [Suspect]
     Route: 058
  3. HUMALOG [Suspect]
     Route: 058
     Dates: start: 20101224, end: 20101224
  4. HUMALOG [Suspect]
     Dosage: 2-4 UNITS/DAY
     Route: 058

REACTIONS (3)
  - WRONG DRUG ADMINISTERED [None]
  - HYPOGLYCAEMIA [None]
  - DIABETIC KETOACIDOSIS [None]
